FAERS Safety Report 11934741 (Version 1)
Quarter: 2016Q1

REPORT INFORMATION
  Report Type: Spontaneous
  Country: US (occurrence: US)
  Receive Date: 20160121
  Receipt Date: 20160121
  Transmission Date: 20160526
  Serious: No
  Sender: FDA-Public Use
  Company Number: US-ASTRAZENECA-2016SE03283

PATIENT
  Sex: Male
  Weight: 77.1 kg

DRUGS (5)
  1. SYMBICORT [Suspect]
     Active Substance: BUDESONIDE\FORMOTEROL FUMARATE DIHYDRATE
     Indication: PULMONARY CONGESTION
     Dosage: 160/4.5 MG TWO PUFFS TWO TIMES A DAY
     Route: 055
     Dates: start: 20160109
  2. CREON [Concomitant]
     Active Substance: PANCRELIPASE AMYLASE\PANCRELIPASE LIPASE\PANCRELIPASE PROTEASE
     Indication: PANCREATIC DISORDER
     Route: 048
     Dates: start: 2012
  3. ADVAIR HFA [Concomitant]
     Active Substance: FLUTICASONE PROPIONATE\SALMETEROL XINAFOATE
     Indication: ASTHMA
     Dosage: 1 PUFF TWO TIMES A DAY
     Route: 055
  4. SYMBICORT [Suspect]
     Active Substance: BUDESONIDE\FORMOTEROL FUMARATE DIHYDRATE
     Indication: INFLUENZA LIKE ILLNESS
     Dosage: 160/4.5 MG TWO PUFFS TWO TIMES A DAY
     Route: 055
     Dates: start: 20160109
  5. PROBIOTIC [Concomitant]
     Active Substance: PROBIOTICS NOS
     Indication: FUNCTIONAL GASTROINTESTINAL DISORDER
     Route: 048
     Dates: start: 2013

REACTIONS (3)
  - Cough [Unknown]
  - Nasopharyngitis [Unknown]
  - Drug dose omission [Unknown]
